FAERS Safety Report 8222024-9 (Version None)
Quarter: 2012Q1

REPORT INFORMATION
  Report Type: 
  Country: None (occurrence: None)
  Receive Date: 20120316
  Receipt Date: 20120306
  Transmission Date: 20120608
  Serious: Yes (Congenital Anomaly, Other)
  Sender: FDA-Public Use
  Company Number: AXC-2012-000100

PATIENT

DRUGS (4)
  1. PREDNISOLONE [Suspect]
     Indication: FOETAL EXPOSURE DURING PREGNANCY
     Dosage: TRANSPLACENTAL
     Route: 064
  2. CYCLOSPORINE [Suspect]
     Indication: FOETAL EXPOSURE DURING PREGNANCY
     Dosage: TRANSPLACENTAL
     Route: 064
  3. URSODEOXYCHOLIC ACID (URSODEOXYCHOLIC ACID) UNKNOWN [Suspect]
     Indication: FOETAL EXPOSURE DURING PREGNANCY
     Dosage: TRANSPLACENTAL
     Route: 064
  4. MYCOPHENOLATE MOFETIL [Suspect]
     Indication: FOETAL EXPOSURE DURING PREGNANCY
     Dosage: 1 G, QD, TRANSPLACENTAL
     Route: 064

REACTIONS (4)
  - CONGENITAL BRAIN DAMAGE [None]
  - PREMATURE BABY [None]
  - ATRIAL SEPTAL DEFECT [None]
  - MATERNAL DRUGS AFFECTING FOETUS [None]
